FAERS Safety Report 15344250 (Version 2)
Quarter: 2018Q3

REPORT INFORMATION
  Report Type: Spontaneous
  Country: US (occurrence: US)
  Receive Date: 20180903
  Receipt Date: 20180927
  Transmission Date: 20181010
  Serious: No
  Sender: FDA-Public Use
  Company Number: US-PFIZER INC-2018352498

PATIENT
  Age: 85 Year
  Sex: Male

DRUGS (1)
  1. LYRICA [Suspect]
     Active Substance: PREGABALIN
     Dosage: 25 MG, UNK

REACTIONS (5)
  - Pain in extremity [Unknown]
  - Drug effect incomplete [Unknown]
  - Burning sensation [Unknown]
  - Poor quality sleep [Unknown]
  - Paraesthesia [Unknown]
